FAERS Safety Report 6104784-6 (Version None)
Quarter: 2009Q1

REPORT INFORMATION
  Report Type: 
  Country: None (occurrence: None)
  Receive Date: 20090306
  Receipt Date: 20090220
  Transmission Date: 20090719
  Serious: Yes (Other)
  Sender: FDA-Public Use
  Company Number: PHHY2009MX06445

PATIENT
  Sex: Female

DRUGS (4)
  1. DIOVAN [Suspect]
     Indication: HYPERTENSION
     Dosage: 1 TABLET DAILY
     Route: 048
     Dates: start: 20061107
  2. AMLODIPINE [Concomitant]
     Dosage: 1 TABLET DAILY
     Route: 048
     Dates: start: 20090201
  3. TENORMIN [Concomitant]
     Dosage: 1 TABLET DAILY
     Route: 048
     Dates: start: 20090201
  4. OMEPRAZOLE [Concomitant]
     Dosage: 1 TABLET DAILY
     Route: 048
     Dates: start: 20090201

REACTIONS (3)
  - FALL [None]
  - FOOT FRACTURE [None]
  - HAEMATOMA [None]
